FAERS Safety Report 11371969 (Version 1)
Quarter: 2015Q3

REPORT INFORMATION
  Report Type: Spontaneous
  Country: US (occurrence: US)
  Receive Date: 20150812
  Receipt Date: 20150812
  Transmission Date: 20151125
  Serious: Yes (Other)
  Sender: FDA-Public Use
  Company Number: US-BRISTOL-MYERS SQUIBB COMPANY-BMS-2015-052073

PATIENT

DRUGS (2)
  1. NULOJIX [Suspect]
     Active Substance: BELATACEPT
     Dosage: 5 MG/KG, QMO
     Route: 042
  2. NULOJIX [Suspect]
     Active Substance: BELATACEPT
     Indication: LIVER TRANSPLANT
     Dosage: 10 MG/KG, QCYCLE
     Route: 042

REACTIONS (2)
  - Transplant rejection [Unknown]
  - Off label use [Unknown]
